FAERS Safety Report 4483956-0 (Version None)
Quarter: 2004Q4

REPORT INFORMATION
  Report Type: 
  Country: None (occurrence: None)
  Receive Date: 20041021
  Receipt Date: 20040916
  Transmission Date: 20050328
  Serious: No
  Sender: FDA-Public Use
  Company Number: USA040978509

PATIENT
  Age: 14 Year
  Sex: Male

DRUGS (3)
  1. ZYPREXA [Suspect]
     Indication: BIPOLAR DISORDER
  2. ZYPREXA [Suspect]
     Indication: MANIA
  3. STRATTERA [Suspect]
     Indication: ATTENTION DEFICIT/HYPERACTIVITY DISORDER

REACTIONS (3)
  - ABDOMINAL PAIN [None]
  - ABDOMINAL REBOUND TENDERNESS [None]
  - BLOOD URINE PRESENT [None]
